FAERS Safety Report 7215702-1 (Version None)
Quarter: 2011Q1

REPORT INFORMATION
  Report Type: 
  Country: None (occurrence: None)
  Receive Date: 20110105
  Receipt Date: 20110105
  Transmission Date: 20110831
  Serious: No
  Sender: FDA-Public Use
  Company Number: None

PATIENT
  Age: 87 Year
  Sex: Male
  Weight: 71.7 kg

DRUGS (2)
  1. HYDROCHLOROTHIAZIDE [Suspect]
     Indication: HYPERTENSION
     Dosage: 12.5 MG AM PO
     Route: 048
     Dates: start: 20101116, end: 20101122
  2. HYDROCHLOROTHIAZIDE [Suspect]
     Indication: CEREBROVASCULAR ACCIDENT PROPHYLAXIS
     Dosage: 12.5 MG AM PO
     Route: 048
     Dates: start: 20101116, end: 20101122

REACTIONS (2)
  - DEHYDRATION [None]
  - ACUTE PRERENAL FAILURE [None]
